FAERS Safety Report 9686131 (Version 3)
Quarter: 2013Q4

REPORT INFORMATION
  Report Type: Spontaneous
  Country: FI (occurrence: FI)
  Receive Date: 20131113
  Receipt Date: 20131224
  Transmission Date: 20140711
  Serious: Yes (Life-Threatening, Hospitalization, Other)
  Sender: FDA-Public Use
  Company Number: PHHY2013FI129059

PATIENT
  Sex: Female

DRUGS (8)
  1. GILENYA [Suspect]
     Indication: RELAPSING-REMITTING MULTIPLE SCLEROSIS
     Dosage: 0.5 MG, QD
     Route: 048
     Dates: start: 20130522, end: 20131108
  2. SOLU-MEDROL [Suspect]
     Indication: MULTIPLE SCLEROSIS RELAPSE
     Dosage: 1 MG, DAILY
     Route: 042
     Dates: start: 20131108, end: 20131110
  3. AMANTADINE [Concomitant]
     Indication: FATIGUE
  4. VENLAFAXINE [Concomitant]
     Indication: DEPRESSION
     Dosage: 150 MG, QD
     Route: 048
     Dates: start: 20130214
  5. TRIMOPAN [Concomitant]
     Indication: URINARY TRACT INFECTION
     Dosage: 100 MG, QD
     Route: 048
  6. SIRDALUD RETARD [Concomitant]
     Dosage: 6MGX1 FOR THE NIGHT TIME AND 2MGX1-2 DURING THE DAY IF NEEDED
     Dates: start: 20130812
  7. SIRDALUD [Concomitant]
     Dosage: 1 DF, PRN
  8. SOMAC [Concomitant]
     Indication: ABDOMINAL DISCOMFORT
     Dosage: 20 MG, QD
     Route: 048
     Dates: start: 20131111

REACTIONS (18)
  - Dyspnoea [Recovered/Resolved]
  - Stridor [Recovered/Resolved]
  - Cough [Unknown]
  - Asphyxia [Unknown]
  - Pharyngeal oedema [Unknown]
  - Laryngitis [Unknown]
  - Anaphylactic reaction [Recovered/Resolved]
  - Depressed level of consciousness [Recovered/Resolved]
  - Multiple sclerosis relapse [Recovered/Resolved]
  - Muscular weakness [Unknown]
  - Limb discomfort [Unknown]
  - Alopecia [Unknown]
  - Pyrexia [Unknown]
  - Fatigue [Unknown]
  - Dysphagia [Unknown]
  - Nasopharyngitis [Unknown]
  - Upper respiratory tract infection [Unknown]
  - Lymphocyte count decreased [Unknown]
